FAERS Safety Report 6692797-5 (Version None)
Quarter: 2010Q2

REPORT INFORMATION
  Report Type: 
  Country: None (occurrence: None)
  Receive Date: 20100412
  Receipt Date: 20100331
  Transmission Date: 20101027
  Serious: No
  Sender: FDA-Public Use
  Company Number: US-144899

PATIENT
  Sex: Female

DRUGS (1)
  1. WINRHO SDF LIQUID [Suspect]
     Indication: IDIOPATHIC THROMBOCYTOPENIC PURPURA
     Dosage: 40 UG/KG TOTAL
     Dates: start: 20091215, end: 20091215

REACTIONS (1)
  - HAEMOLYTIC ANAEMIA [None]
